FAERS Safety Report 4940072-9 (Version None)
Quarter: 2006Q1

REPORT INFORMATION
  Report Type: 
  Country: None (occurrence: None)
  Receive Date: 20060310
  Receipt Date: 20060301
  Transmission Date: 20060701
  Serious: Yes (Other)
  Sender: FDA-Public Use
  Company Number: US-ROCHE-438577

PATIENT
  Age: 42 Year
  Sex: Female

DRUGS (1)
  1. ROCEPHIN [Suspect]
     Indication: LYME DISEASE
     Route: 042
     Dates: start: 19990615

REACTIONS (2)
  - BLOOD HOMOCYSTEINE INCREASED [None]
  - RETINAL VASCULAR THROMBOSIS [None]
